FAERS Safety Report 21224176 (Version 3)
Quarter: 2023Q1

REPORT INFORMATION
  Report Type: Spontaneous
  Country: US (occurrence: US)
  Receive Date: 20220817
  Receipt Date: 20230103
  Transmission Date: 20230417
  Serious: No
  Sender: FDA-Public Use
  Company Number: US-BAYER-2022A114828

PATIENT
  Sex: Female

DRUGS (1)
  1. CLIMARA PRO [Suspect]
     Active Substance: ESTRADIOL\LEVONORGESTREL
     Indication: Menopausal symptoms
     Route: 062

REACTIONS (4)
  - Device adhesion issue [None]
  - Wrong technique in product usage process [None]
  - Abdominal distension [Recovered/Resolved]
  - Abdominal pain lower [Recovered/Resolved]
